FAERS Safety Report 13431342 (Version 1)
Quarter: 2017Q2

REPORT INFORMATION
  Report Type: Spontaneous
  Country: FR (occurrence: FR)
  Receive Date: 20170412
  Receipt Date: 20170412
  Transmission Date: 20170830
  Serious: Yes (Other)
  Sender: FDA-Public Use
  Company Number: FR-ABBVIE-17P-056-1940379-00

PATIENT
  Age: 24 Month
  Sex: Male

DRUGS (2)
  1. DEPAKINE [Suspect]
     Active Substance: VALPROATE SODIUM
     Route: 048
     Dates: start: 201108, end: 20110831
  2. DEPAKINE [Suspect]
     Active Substance: VALPROATE SODIUM
     Indication: EPILEPSY
     Route: 048
     Dates: start: 20110707, end: 201108

REACTIONS (3)
  - Disturbance in attention [Unknown]
  - Cognitive disorder [Unknown]
  - Disturbance in social behaviour [Unknown]

NARRATIVE: CASE EVENT DATE: 2013
